FAERS Safety Report 19676648 (Version 1)
Quarter: 2021Q3

REPORT INFORMATION
  Report Type: Spontaneous
  Country: IT (occurrence: IT)
  Receive Date: 20210810
  Receipt Date: 20210810
  Transmission Date: 20211014
  Serious: Yes (Hospitalization)
  Sender: FDA-Public Use
  Company Number: IT-SUN PHARMACEUTICAL INDUSTRIES LTD-2021RR-307011

PATIENT
  Age: 73 Year
  Sex: Female
  Weight: 70 kg

DRUGS (2)
  1. VECTIBIX [Concomitant]
     Active Substance: PANITUMUMAB
     Indication: RECTAL CANCER
     Dosage: 420 MILLIGRAM, UNK
     Route: 042
     Dates: start: 20210525, end: 20210629
  2. OXALIPLATINO SUN 5 MG/ML, CONCENTRATO PER SOLUZIONE PER INFUSIONE [Suspect]
     Active Substance: OXALIPLATIN
     Indication: PERITONEAL CARCINOMA METASTATIC
     Dosage: 116.8 MILLIGRAM,  CYCLICAL
     Route: 042
     Dates: start: 20210525, end: 20210629

REACTIONS (4)
  - Dyspnoea [Recovered/Resolved]
  - Bradycardia [Recovered/Resolved]
  - Bronchospasm [Recovered/Resolved]
  - Oxygen saturation decreased [Recovered/Resolved]

NARRATIVE: CASE EVENT DATE: 20210629
